FAERS Safety Report 18487188 (Version 1)
Quarter: 2020Q4

REPORT INFORMATION
  Report Type: Spontaneous
  Country: CN (occurrence: CN)
  Receive Date: 20201110
  Receipt Date: 20201110
  Transmission Date: 20210114
  Serious: Yes (Other)
  Sender: FDA-Public Use
  Company Number: CN-ELI_LILLY_AND_COMPANY-CN202011000494

PATIENT
  Age: 22 Month
  Sex: Female
  Weight: 10 kg

DRUGS (1)
  1. CIALIS [Suspect]
     Active Substance: TADALAFIL
     Indication: PRODUCT USED FOR UNKNOWN INDICATION
     Dosage: 20 MG, SINGLE
     Route: 048
     Dates: start: 20201028, end: 20201028

REACTIONS (6)
  - Macule [Not Recovered/Not Resolved]
  - Accidental exposure to product by child [Unknown]
  - Capillary fragility [Not Recovered/Not Resolved]
  - Flushing [Not Recovered/Not Resolved]
  - Accidental overdose [Unknown]
  - Mental disorder [Not Recovered/Not Resolved]

NARRATIVE: CASE EVENT DATE: 20201028
